FAERS Safety Report 10662502 (Version 3)
Quarter: 2015Q2

REPORT INFORMATION
  Report Type: Spontaneous
  Country: US (occurrence: US)
  Receive Date: 20141218
  Receipt Date: 20150603
  Transmission Date: 20150821
  Serious: Yes (Life-Threatening, Hospitalization)
  Sender: FDA-Public Use
  Company Number: US-ROXANE LABORATORIES, INC.-2014-RO-01915RO

PATIENT
  Age: 85 Year
  Weight: 63 kg

DRUGS (12)
  1. PREDNISONE. [Suspect]
     Active Substance: PREDNISONE
     Dosage: 60 MG
     Route: 048
     Dates: start: 20101229, end: 20110127
  2. MELPHALAN [Suspect]
     Active Substance: MELPHALAN
     Dosage: 8 MG
     Route: 048
     Dates: start: 20110219, end: 20110225
  3. PREDNISONE. [Suspect]
     Active Substance: PREDNISONE
     Dosage: 20 MG
     Route: 048
     Dates: start: 20101112, end: 20101119
  4. MELPHALAN [Suspect]
     Active Substance: MELPHALAN
     Indication: PLASMA CELL MYELOMA
     Dosage: 8 MG
     Route: 048
     Dates: start: 20101112, end: 20101115
  5. MELPHALAN [Suspect]
     Active Substance: MELPHALAN
     Dosage: 8 MG
     Route: 048
     Dates: start: 20100827, end: 20110225
  6. ALKERAN [Suspect]
     Active Substance: MELPHALAN
     Indication: PLASMA CELL MYELOMA
     Dosage: 8 MG
     Route: 048
     Dates: start: 20101231, end: 20110107
  7. MELPHALAN [Suspect]
     Active Substance: MELPHALAN
     Dosage: 12 MG
     Route: 048
     Dates: start: 20101112, end: 20101115
  8. ASA [Concomitant]
     Active Substance: ASPIRIN
     Indication: PLASMA CELL MYELOMA
     Dosage: 325 MG
     Route: 065
  9. PREDNISONE. [Suspect]
     Active Substance: PREDNISONE
     Indication: PLASMA CELL MYELOMA
     Dosage: 60 MG
     Route: 048
     Dates: start: 20101029, end: 20101222
  10. PREDNISONE. [Suspect]
     Active Substance: PREDNISONE
     Dosage: 120 MG
     Route: 048
     Dates: start: 20110219, end: 20110225
  11. PREDNISONE. [Suspect]
     Active Substance: PREDNISONE
     Dosage: 420 MG
     Route: 048
     Dates: start: 20100827, end: 20110225
  12. REVILMID [Concomitant]
     Indication: PLASMA CELL MYELOMA
     Dosage: 5 MG
     Route: 065
     Dates: start: 20100827, end: 20100916

REACTIONS (3)
  - Cerebrovascular accident [Unknown]
  - Cellulitis [Not Recovered/Not Resolved]
  - Limb injury [Not Recovered/Not Resolved]

NARRATIVE: CASE EVENT DATE: 20101121
